FAERS Safety Report 9604418 (Version 1)
Quarter: 2013Q4

REPORT INFORMATION
  Report Type: Spontaneous
  Country: SE (occurrence: SE)
  Receive Date: 20131008
  Receipt Date: 20131008
  Transmission Date: 20140711
  Serious: Yes (Other)
  Sender: FDA-Public Use
  Company Number: SE-ROCHE-1284785

PATIENT
  Sex: Female

DRUGS (2)
  1. MABTHERA [Suspect]
     Indication: RHEUMATOID ARTHRITIS
     Dosage: 3 PCS, EVERY 6 MONTHS
     Route: 065
  2. PREDNISOLON [Concomitant]
     Route: 065

REACTIONS (7)
  - Dyspnoea [Recovered/Resolved]
  - Pyrexia [Unknown]
  - Oropharyngeal pain [Unknown]
  - Laboratory test abnormal [Recovering/Resolving]
  - Sepsis [Recovering/Resolving]
  - Fatigue [Unknown]
  - Agranulocytosis [Recovering/Resolving]
